FAERS Safety Report 10480214 (Version 1)
Quarter: 2014Q3

REPORT INFORMATION
  Report Type: Spontaneous
  Country: US (occurrence: US)
  Receive Date: 20140929
  Receipt Date: 20140929
  Transmission Date: 20150326
  Serious: Yes (Life-Threatening, Hospitalization)
  Sender: FDA-Public Use
  Company Number: US-BRISTOL-MYERS SQUIBB COMPANY-21431630

PATIENT
  Age: 68 Year
  Sex: Female
  Weight: 82.54 kg

DRUGS (1)
  1. BYETTA [Suspect]
     Active Substance: EXENATIDE
     Indication: DIABETES MELLITUS
     Dosage: BAT.NO-C194462A,EXP.DT-AUG2015

REACTIONS (2)
  - Product quality issue [Unknown]
  - Lung infection [Unknown]
